FAERS Safety Report 19313492 (Version 2)
Quarter: 2021Q2

REPORT INFORMATION
  Report Type: Spontaneous
  Country: US (occurrence: US)
  Receive Date: 20210527
  Receipt Date: 20210624
  Transmission Date: 20210717
  Serious: Yes (Death)
  Sender: FDA-Public Use
  Company Number: US-PFIZER INC-2021422966

PATIENT
  Age: 58 Year
  Sex: Male

DRUGS (14)
  1. MEROPENEM. [Suspect]
     Active Substance: MEROPENEM
     Indication: ANTIBIOTIC THERAPY
     Dosage: 2 G, 3X/DAY (EVERY 8 HOURS EXTENDED INFUSION)
  2. POLYMYXIN [Suspect]
     Active Substance: POLYMYXIN
     Indication: ANTIBIOTIC THERAPY
     Dosage: 175000 IU (LOADING DOSE/ 25,000 U/KG)
  3. AZITHROMYCIN ANHYDROUS. [Suspect]
     Active Substance: AZITHROMYCIN ANHYDROUS
     Dosage: 250 MG, DAILY (250 MG DAILY FOR 4 DAYS)
  4. PIPERACILLIN/TAZOBACTAM [Suspect]
     Active Substance: PIPERACILLIN SODIUM\TAZOBACTAM SODIUM
     Indication: PNEUMONIA
     Dosage: 3.375 G, 3X/DAY (EXTENDED INFUSION EVERY 8 HOURS)
  5. ALBUTEROL [SALBUTAMOL] [Suspect]
     Active Substance: ALBUTEROL
     Indication: PROPHYLAXIS
     Dosage: 2.5 MG
  6. SODIUM CHLORIDE. [Concomitant]
     Active Substance: SODIUM CHLORIDE
     Indication: VEHICLE SOLUTION USE
     Dosage: UNK
  7. HYDROXYCHLOROQUINE [Suspect]
     Active Substance: HYDROXYCHLOROQUINE
     Dosage: 200 MG, 2X/DAY (THEN 200MG TWICE DAILY FOR 4 DAYS)
  8. NITAZOXANIDE [Suspect]
     Active Substance: NITAZOXANIDE
     Indication: COVID-19
     Dosage: 500 MG, 2X/DAY (500MG TWICE DAILY FOR 5 DAYS)
  9. POLYMYXIN [Suspect]
     Active Substance: POLYMYXIN
     Dosage: 900000 IU, 2X/DAY (12,500 U/KG)
  10. TIGECYCLINE. [Suspect]
     Active Substance: TIGECYCLINE
     Dosage: 50 MG, 2X/DAY
  11. TIGECYCLINE. [Suspect]
     Active Substance: TIGECYCLINE
     Indication: ANTIBIOTIC THERAPY
     Dosage: 100 MG (LOADING DOSE)
  12. AZITHROMYCIN ANHYDROUS. [Suspect]
     Active Substance: AZITHROMYCIN ANHYDROUS
     Indication: COVID-19
     Dosage: 500 MG (500MG FOR 1 DAY)
  13. HYDROXYCHLOROQUINE [Suspect]
     Active Substance: HYDROXYCHLOROQUINE
     Indication: COVID-19
     Dosage: 400 MG, 2X/DAY (400 MG TWICE DAILY FOR 1 DAY)
  14. EPOPROSTENOL. [Suspect]
     Active Substance: EPOPROSTENOL
     Indication: HYPOXIA
     Dosage: UNK

REACTIONS (1)
  - Drug ineffective [Fatal]
